FAERS Safety Report 4853701-5 (Version None)
Quarter: 2005Q4

REPORT INFORMATION
  Report Type: 
  Country: None (occurrence: None)
  Receive Date: 20051212
  Receipt Date: 20051121
  Transmission Date: 20060501
  Serious: Yes (Death)
  Sender: FDA-Public Use
  Company Number: FR200512000022

PATIENT
  Age: 57 Year
  Sex: Male
  Weight: 63 kg

DRUGS (7)
  1. ALIMTA [Suspect]
     Dosage: 850 MG, INTRAVENOUS
     Route: 042
     Dates: start: 20050909
  2. GEMCITABINE HYDROCHLORIDE (GEMCITABINE HYDROCHLORIDE) [Concomitant]
  3. NEULASTA [Concomitant]
  4. CISPLATIN [Concomitant]
  5. PACLITAXEL [Concomitant]
  6. EPOETIN BETA (EPOTEIN BETA) [Concomitant]
  7. GRANOCYTE (LENOGRASTIM) [Concomitant]

REACTIONS (1)
  - FEBRILE NEUTROPENIA [None]
